FAERS Safety Report 24779518 (Version 1)
Quarter: 2024Q4

REPORT INFORMATION
  Report Type: Spontaneous
  Country: US (occurrence: US)
  Receive Date: 20241226
  Receipt Date: 20241226
  Transmission Date: 20250115
  Serious: Yes (Other)
  Sender: MERCK
  Company Number: US-009507513-2412USA009068

PATIENT
  Age: 67 Year
  Sex: Female

DRUGS (3)
  1. WELIREG [Suspect]
     Active Substance: BELZUTIFAN
     Indication: Renal cancer
     Route: 048
  2. CABOMETYX [Suspect]
     Active Substance: CABOZANTINIB S-MALATE
     Indication: Renal cancer
     Dosage: 40 MILLIGRAM, QD
     Route: 048
     Dates: start: 20240701, end: 2024
  3. CABOMETYX [Suspect]
     Active Substance: CABOZANTINIB S-MALATE
     Dosage: 40 MILLIGRAM, QD
     Route: 048
     Dates: start: 2024, end: 20241123

REACTIONS (6)
  - Haemoglobin decreased [Unknown]
  - Diarrhoea [Unknown]
  - Hypertension [Unknown]
  - Dry skin [Unknown]
  - Skin exfoliation [Unknown]
  - Product dose omission issue [Unknown]

NARRATIVE: CASE EVENT DATE: 20241001
